FAERS Safety Report 12180226 (Version 1)
Quarter: 2016Q1

REPORT INFORMATION
  Report Type: Spontaneous
  Country: FR (occurrence: FR)
  Receive Date: 20160315
  Receipt Date: 20160315
  Transmission Date: 20160526
  Serious: Yes (Hospitalization)
  Sender: FDA-Public Use
  Company Number: FR-SA-2016SA049825

PATIENT
  Age: 83 Year
  Sex: Female

DRUGS (25)
  1. CALCIPARINE [Suspect]
     Active Substance: HEPARIN CALCIUM
     Route: 058
     Dates: start: 20151225, end: 20160114
  2. AMOXICILLIN TRIHYDRATE/CLAVULANIC ACID [Suspect]
     Active Substance: AMOXICILLIN\CLAVULANIC ACID
     Indication: ENDOCARDITIS
  3. TARGOCID [Concomitant]
     Active Substance: TEICOPLANIN
     Route: 042
     Dates: start: 20151218, end: 20151221
  4. MICROLAX [Concomitant]
  5. PULMICORT TURBUHALER [Concomitant]
     Active Substance: BUDESONIDE
  6. EZETROL [Concomitant]
     Active Substance: EZETIMIBE
  7. HYDROCORTISONE ROUSSEL [Concomitant]
     Active Substance: HYDROCORTISONE
     Dates: start: 20151228, end: 20151230
  8. GENTAMICIN. [Suspect]
     Active Substance: GENTAMICIN
     Indication: ENDOCARDITIS
     Route: 042
     Dates: start: 20151231, end: 20160114
  9. TAHOR [Concomitant]
     Active Substance: ATORVASTATIN CALCIUM
  10. OGASTORO [Suspect]
     Active Substance: LANSOPRAZOLE
     Route: 048
     Dates: start: 20151223, end: 20151230
  11. PARACETAMOL [Concomitant]
     Active Substance: ACETAMINOPHEN
  12. HEMIGOXINE [Concomitant]
     Active Substance: DIGOXIN
     Dates: start: 20151223, end: 20151223
  13. PROPOFOL-LIPURO [Concomitant]
     Active Substance: PROPOFOL
     Dates: start: 20151223, end: 20151223
  14. BISOPROLOL [Concomitant]
     Active Substance: BISOPROLOL
  15. HYPNOVEL [Concomitant]
     Active Substance: MIDAZOLAM\MIDAZOLAM HYDROCHLORIDE
     Dates: start: 20151223, end: 20151223
  16. NIMBEX [Concomitant]
     Active Substance: CISATRACURIUM BESYLATE
     Dates: start: 20151223, end: 20151223
  17. COVERAM [Concomitant]
     Active Substance: AMLODIPINE\PERINDOPRIL
  18. ZOPICLONE [Concomitant]
     Active Substance: ZOPICLONE
  19. ACUPAN [Concomitant]
     Active Substance: NEFOPAM HYDROCHLORIDE
     Dates: start: 20151209, end: 20151218
  20. TOPALGIC [Concomitant]
     Active Substance: TRAMADOL
     Dates: start: 20151223, end: 20151230
  21. LASILIX [Suspect]
     Active Substance: FUROSEMIDE
     Route: 048
     Dates: start: 20151220, end: 20160119
  22. BURINEX [Concomitant]
     Active Substance: BUMETANIDE
  23. ATROVENT [Concomitant]
     Active Substance: IPRATROPIUM BROMIDE
  24. DOBUTAMINE [Concomitant]
     Active Substance: DOBUTAMINE\DOBUTAMINE HYDROCHLORIDE
     Dates: start: 20151223, end: 20151223
  25. DIAMOX SEQUELS [Concomitant]
     Active Substance: ACETAZOLAMIDE
     Dates: start: 20151226, end: 20151230

REACTIONS (1)
  - Drug reaction with eosinophilia and systemic symptoms [Recovered/Resolved]

NARRATIVE: CASE EVENT DATE: 20160112
